FAERS Safety Report 5259377-X (Version None)
Quarter: 2007Q1

REPORT INFORMATION
  Report Type: 
  Country: None (occurrence: None)
  Receive Date: 20070305
  Receipt Date: 20070215
  Transmission Date: 20070707
  Serious: Yes (Hospitalization)
  Sender: FDA-Public Use
  Company Number: 2007BL000605

PATIENT
  Age: 17 Year
  Sex: Male

DRUGS (1)
  1. ALBUTEROL SULFATE [Suspect]
     Indication: ASTHMA
     Dosage: 2 PUFFS; 1 X; OROPHRYNGEAL
     Route: 049
     Dates: start: 20070214, end: 20070214

REACTIONS (2)
  - EXPIRED DRUG ADMINISTERED [None]
  - PNEUMONIA [None]
